FAERS Safety Report 15124837 (Version 1)
Quarter: 2018Q3

REPORT INFORMATION
  Report Type: Spontaneous
  Country: US (occurrence: US)
  Receive Date: 20180710
  Receipt Date: 20180710
  Transmission Date: 20181010
  Serious: No
  Sender: FDA-Public Use
  Company Number: US-BAYER-2018-126206

PATIENT
  Sex: Female

DRUGS (2)
  1. MIRALAX [Suspect]
     Active Substance: POLYETHYLENE GLYCOL 3350
     Indication: GASTROINTESTINAL DISORDER
     Dosage: UNK (1?1/2 DOSE DOSE)
     Route: 048
     Dates: start: 201806
  2. BENEFIBER [Concomitant]
     Active Substance: STARCH, WHEAT

REACTIONS (7)
  - Drug ineffective [Unknown]
  - Prescribed underdose [Unknown]
  - Diarrhoea [Unknown]
  - Underdose [Unknown]
  - Product use issue [Unknown]
  - Product use in unapproved indication [Unknown]
  - Off label use [Unknown]

NARRATIVE: CASE EVENT DATE: 201806
